FAERS Safety Report 15329011 (Version 1)
Quarter: 2018Q3

REPORT INFORMATION
  Report Type: Spontaneous
  Country: US (occurrence: US)
  Receive Date: 20180829
  Receipt Date: 20180829
  Transmission Date: 20181010
  Serious: No
  Sender: FDA-Public Use
  Company Number: US-009507513-1412USA006596

PATIENT
  Age: 29 Year
  Sex: Female

DRUGS (4)
  1. ISENTRESS [Suspect]
     Active Substance: RALTEGRAVIR POTASSIUM
     Dosage: 400 (UNIT NOT REPORTED), QD
     Route: 048
     Dates: start: 20140310
  2. ATAZANAVIR SULFATE. [Suspect]
     Active Substance: ATAZANAVIR SULFATE
     Dosage: 300 (UNIT NOT REPORTED), QD
     Route: 048
     Dates: start: 20140303
  3. LAMIVUDINE AND ZIDOVUDINE [Suspect]
     Active Substance: LAMIVUDINE\ZIDOVUDINE
     Dosage: 2 (UNIT NOT REPORTED), QD
     Route: 048
     Dates: start: 20140303
  4. RITONAVIR. [Suspect]
     Active Substance: RITONAVIR
     Dosage: 100 (UNIT NOT REPORTED), QD
     Route: 048
     Dates: start: 20140303

REACTIONS (1)
  - Maternal exposure during pregnancy [Recovered/Resolved]
